FAERS Safety Report 13211210 (Version 4)
Quarter: 2017Q4

REPORT INFORMATION
  Report Type: Spontaneous
  Country: CA (occurrence: CA)
  Receive Date: 20170209
  Receipt Date: 20171013
  Transmission Date: 20180320
  Serious: Yes (Life-Threatening, Other)
  Sender: FDA-Public Use
  Company Number: CA-PFIZER INC-2017057251

PATIENT
  Age: 36 Year
  Sex: Male

DRUGS (8)
  1. CYCLOSPORINE. [Suspect]
     Active Substance: CYCLOSPORINE
     Indication: THROMBOTIC THROMBOCYTOPENIC PURPURA
     Dosage: 300 MG, DAILY (FROM DAY 11 TO DAY 15)
     Route: 048
  2. CYCLOPHOSPHAMIDE. [Suspect]
     Active Substance: CYCLOPHOSPHAMIDE
     Indication: THROMBOTIC THROMBOCYTOPENIC PURPURA
     Dosage: 1250 MG, SINGLE (DAY 29)
     Route: 042
  3. BORTEZOMIB [Suspect]
     Active Substance: BORTEZOMIB
     Dosage: 3.1 MG, CYCLIC (A SECOND CYCLE ON DAY 58, 61, 65, 68)
     Route: 042
  4. BORTEZOMIB [Suspect]
     Active Substance: BORTEZOMIB
     Indication: THROMBOTIC THROMBOCYTOPENIC PURPURA
     Dosage: 3.1 MG (1.3 MG/ M2 PER DOSE), CYCLIC (OVER 2 WEEKS, DAY 16, 19, 23 AND 26)
     Route: 042
  5. CYCLOPHOSPHAMIDE. [Suspect]
     Active Substance: CYCLOPHOSPHAMIDE
     Dosage: 750 MG, SINGLE (DAY 48)
     Route: 042
  6. N-ACETYLCYSTEINE [Suspect]
     Active Substance: ACETYLCYSTEINE
     Indication: THROMBOTIC THROMBOCYTOPENIC PURPURA
     Dosage: 18 G, DAILY (FROM DAY 21 TO 24, DAY 26 TO 29, AND DAY 31)
     Route: 042
  7. METHYLPREDNISOLONE. [Suspect]
     Active Substance: METHYLPREDNISOLONE
     Indication: THROMBOTIC THROMBOCYTOPENIC PURPURA
     Dosage: DAILY HIGH-DOSE, DOSE VARIED FROM 25 TO 100 MG PER PLASMA EXCHANGE SESSION
  8. RITUXIMAB. [Suspect]
     Active Substance: RITUXIMAB
     Indication: THROMBOTIC THROMBOCYTOPENIC PURPURA
     Dosage: 900 MG, WEEKLY (375 MG/M2, TWO WEEKLY INJECTIONS ON DAY 5, 12 AND 35)

REACTIONS (10)
  - Abdominal abscess [Unknown]
  - Device related infection [Unknown]
  - Enterococcal infection [Unknown]
  - Klebsiella infection [Unknown]
  - Clostridium difficile infection [Unknown]
  - Staphylococcal bacteraemia [Unknown]
  - Sepsis [Unknown]
  - Candida infection [Unknown]
  - Drug ineffective [Unknown]
  - Empyema [Unknown]
